FAERS Safety Report 17964544 (Version 5)
Quarter: 2020Q3

REPORT INFORMATION
  Report Type: Spontaneous
  Country: US (occurrence: US)
  Receive Date: 20200630
  Receipt Date: 20200921
  Transmission Date: 20201103
  Serious: Yes (Other)
  Sender: FDA-Public Use
  Company Number: US-LEXICON PHARMACEUTICALS, INC-20-1606-00489

PATIENT
  Age: 71 Year
  Sex: Female

DRUGS (2)
  1. XERMELO [Suspect]
     Active Substance: TELOTRISTAT ETHYL
     Indication: CARCINOID SYNDROME
     Dates: start: 20200604
  2. LANREOTIDE [Concomitant]
     Active Substance: LANREOTIDE

REACTIONS (9)
  - Emergency care [Recovering/Resolving]
  - Joint swelling [Unknown]
  - Asthenia [Not Recovered/Not Resolved]
  - Malaise [Not Recovered/Not Resolved]
  - Thrombosis [Not Recovered/Not Resolved]
  - Nausea [Unknown]
  - Abdominal pain lower [Unknown]
  - Flushing [Unknown]
  - Retching [Unknown]

NARRATIVE: CASE EVENT DATE: 202006
